FAERS Safety Report 5851771-9 (Version None)
Quarter: 2008Q3

REPORT INFORMATION
  Report Type: 
  Country: None (occurrence: None)
  Receive Date: 20080807
  Receipt Date: 20080528
  Transmission Date: 20090109
  Serious: Yes (Hospitalization)
  Sender: FDA-Public Use
  Company Number: FLUO20080006

PATIENT
  Age: 49 Year
  Sex: Male
  Weight: 73 kg

DRUGS (5)
  1. FLUOROURACIL [Suspect]
     Indication: COLON CANCER
     Dosage: 1000 MG/ M2, 7  CYCLES
     Route: 042
     Dates: start: 20060531, end: 20060913
  2. CETUXIMAB [Suspect]
     Indication: COLON CANCER
     Dosage: 400 MG (M2, 1 IN 1 WK, INTRAVENOUS
     Route: 017
     Dates: start: 20060531
  3. OXALIPLATIN [Suspect]
     Indication: COLON CANCER
     Dosage: 85 MG/M2, 7 CYCLES
     Route: 042
     Dates: start: 20060531, end: 20060913
  4. LEUCOVORIN CALCIUM [Suspect]
     Indication: COLON CANCER
     Dosage: 200 MG/M2. 7  CYCLES
     Route: 042
     Dates: start: 20060531, end: 20060913
  5. PREDNISONE TAB [Concomitant]

REACTIONS (5)
  - ABSCESS [None]
  - MUSCULOSKELETAL PAIN [None]
  - POLLAKIURIA [None]
  - PURPURA [None]
  - PYREXIA [None]
